FAERS Safety Report 6741354-0 (Version None)
Quarter: 2010Q2

REPORT INFORMATION
  Report Type: 
  Country: None (occurrence: None)
  Receive Date: 20100526
  Receipt Date: 20100517
  Transmission Date: 20101027
  Serious: Yes (Hospitalization)
  Sender: FDA-Public Use
  Company Number: US-SANOFI-AVENTIS-2010SA029277

PATIENT
  Age: 72 Year
  Sex: Male

DRUGS (4)
  1. RILUTEK [Suspect]
     Route: 048
     Dates: start: 20050101
  2. ABILIFY [Concomitant]
  3. SEROQUEL [Concomitant]
  4. PAXIL [Concomitant]

REACTIONS (3)
  - DELIRIUM [None]
  - ELECTROCARDIOGRAM QT PROLONGED [None]
  - MENTAL STATUS CHANGES [None]
